FAERS Safety Report 17676010 (Version 2)
Quarter: 2020Q2

REPORT INFORMATION
  Report Type: Report from Study
  Country: US (occurrence: US)
  Receive Date: 20200416
  Receipt Date: 20200601
  Transmission Date: 20200714
  Serious: Yes (Hospitalization)
  Sender: FDA-Public Use
  Company Number: US-ALNYLAM PHARMACEUTICALS, INC.-ALN-2020-000436

PATIENT
  Age: 72 Year
  Sex: Male

DRUGS (1)
  1. ONPATTRO [Suspect]
     Active Substance: PATISIRAN SODIUM
     Indication: HEREDITARY NEUROPATHIC AMYLOIDOSIS
     Dosage: UNK
     Route: 042

REACTIONS (11)
  - Incontinence [Unknown]
  - Retching [Unknown]
  - Hypoaesthesia [Unknown]
  - Oesophageal disorder [Unknown]
  - Nausea [Unknown]
  - Feeding disorder [Unknown]
  - Fall [Unknown]
  - Urinary tract infection [Unknown]
  - Dizziness [Unknown]
  - Weight decreased [Unknown]
  - Dysphagia [Unknown]

NARRATIVE: CASE EVENT DATE: 20200411
